FAERS Safety Report 5751595-7 (Version None)
Quarter: 2008Q2

REPORT INFORMATION
  Report Type: 
  Country: None (occurrence: None)
  Receive Date: 20080528
  Receipt Date: 20080519
  Transmission Date: 20081010
  Serious: Yes (Hospitalization, Other)
  Sender: FDA-Public Use
  Company Number: PHHY2008JP08517

PATIENT
  Age: 80 Year
  Sex: Male

DRUGS (9)
  1. DIOVAN [Suspect]
     Indication: HYPERTENSION
     Dosage: UNK
     Route: 048
     Dates: start: 20080404, end: 20080425
  2. BERIZYM [Concomitant]
     Route: 048
  3. ARICEPT [Concomitant]
     Dosage: 5MG
     Route: 048
  4. ADOFEED [Concomitant]
  5. ALLOPURINOL [Concomitant]
     Dosage: 1DF
     Route: 048
  6. LENDORMIN [Concomitant]
     Dosage: 1 DF
     Route: 048
  7. VOLTAREN EMULGEL ^GEIGY^ [Concomitant]
     Route: 061
  8. TENORMIN [Concomitant]
     Indication: HYPERTROPHIC CARDIOMYOPATHY
     Dosage: UNK
     Route: 048
     Dates: start: 20010101
  9. COIX SEED [Concomitant]
     Dosage: UNK
     Route: 048
     Dates: start: 20080401

REACTIONS (9)
  - CARDIAC FAILURE [None]
  - CARDIOMEGALY [None]
  - CATARACT OPERATION [None]
  - COLONY STIMULATING FACTOR THERAPY [None]
  - GENERALISED OEDEMA [None]
  - NEUTROPHIL COUNT DECREASED [None]
  - PLATELET COUNT DECREASED [None]
  - PLATELET TRANSFUSION [None]
  - WHITE BLOOD CELL COUNT DECREASED [None]
